FAERS Safety Report 24867328 (Version 2)
Quarter: 2025Q3

REPORT INFORMATION
  Report Type: Spontaneous
  Country: EU (occurrence: EU)
  Receive Date: 20250121
  Receipt Date: 20250818
  Transmission Date: 20251021
  Serious: Yes (Life-Threatening)
  Sender: ACCORD
  Company Number: None

PATIENT
  Age: 56 Year
  Sex: Female

DRUGS (3)
  1. METHOTREXATE [Suspect]
     Active Substance: METHOTREXATE
     Indication: Psoriasis
     Dates: start: 202405, end: 20241114
  2. BACTRIM [Suspect]
     Active Substance: SULFAMETHOXAZOLE\TRIMETHOPRIM
     Indication: Pneumocystis jirovecii pneumonia
     Dates: start: 20241122, end: 20241127
  3. ATOVAQUONE [Suspect]
     Active Substance: ATOVAQUONE
     Indication: Pneumocystis jirovecii pneumonia
     Dates: start: 20241128, end: 20241202

REACTIONS (6)
  - Interstitial lung disease [Recovered/Resolved]
  - Pancytopenia [Recovering/Resolving]
  - Acute kidney injury [Recovered/Resolved]
  - Odynophagia [Unknown]
  - Decreased appetite [Unknown]
  - Hepatic cytolysis [Recovered/Resolved]

NARRATIVE: CASE EVENT DATE: 20240101
